FAERS Safety Report 11641133 (Version 1)
Quarter: 2015Q4

REPORT INFORMATION
  Report Type: Spontaneous
  Country: CO (occurrence: CO)
  Receive Date: 20151019
  Receipt Date: 20151019
  Transmission Date: 20160304
  Serious: Yes (Hospitalization, Other)
  Sender: FDA-Public Use
  Company Number: CO-JNJFOC-20151009095

PATIENT
  Age: 53 Year
  Sex: Male

DRUGS (1)
  1. STELARA [Suspect]
     Active Substance: USTEKINUMAB
     Indication: PSORIASIS
     Dosage: WEEK 0, WEEK 4, MAINTENAINCE EVERY 12 WEEKS
     Route: 058
     Dates: start: 20150717

REACTIONS (2)
  - Syncope [Recovered/Resolved]
  - Angina unstable [Recovered/Resolved]

NARRATIVE: CASE EVENT DATE: 20150909
